FAERS Safety Report 22021740 (Version 2)
Quarter: 2023Q1

REPORT INFORMATION
  Report Type: Spontaneous
  Country: US (occurrence: US)
  Receive Date: 20230222
  Receipt Date: 20230316
  Transmission Date: 20230418
  Serious: No
  Sender: FDA-Public Use
  Company Number: US-MICRO LABS LIMITED-ML2023-00741

PATIENT
  Age: 57 Year
  Sex: Male
  Weight: 68.100 kg

DRUGS (3)
  1. TRAVOPROST [Suspect]
     Active Substance: TRAVOPROST
     Indication: Glaucoma
     Dosage: DOSE: ONE DROP IN THE LEFT EYE?FREQUENCY: ONCE IN THE NIGHT
     Route: 047
     Dates: start: 20230204, end: 20230204
  2. COMBIGAN [Concomitant]
     Active Substance: BRIMONIDINE TARTRATE\TIMOLOL MALEATE
     Dosage: TAKING THESE TWO DROPS FOR LAST 10 YEARS
  3. AZOPT [Concomitant]
     Active Substance: BRINZOLAMIDE
     Dosage: TAKING THESE TWO DROPS FOR LAST 10 YEARS

REACTIONS (5)
  - Discomfort [Recovered/Resolved]
  - Eye irritation [Recovered/Resolved]
  - Ocular hyperaemia [Recovered/Resolved]
  - Headache [Recovered/Resolved]
  - Eye pain [Unknown]

NARRATIVE: CASE EVENT DATE: 20230201
